FAERS Safety Report 6680639-3 (Version None)
Quarter: 2010Q2

REPORT INFORMATION
  Report Type: 
  Country: None (occurrence: None)
  Receive Date: 20100414
  Receipt Date: 20100407
  Transmission Date: 20101027
  Serious: Yes (Other)
  Sender: FDA-Public Use
  Company Number: FI-PFIZER INC-2010044304

PATIENT
  Age: 60 Year
  Sex: Male

DRUGS (2)
  1. CAVERJECT DUAL [Suspect]
     Indication: ERECTILE DYSFUNCTION
     Dosage: 15-20 MICROGRAMS
     Route: 017
     Dates: start: 20091001
  2. MAREVAN FORTE [Concomitant]
     Dosage: 5 MG, UNK
     Dates: start: 20100113

REACTIONS (1)
  - THROMBOSIS [None]
